FAERS Safety Report 7210148-4 (Version None)
Quarter: 2011Q1

REPORT INFORMATION
  Report Type: 
  Country: None (occurrence: None)
  Receive Date: 20110105
  Receipt Date: 20101227
  Transmission Date: 20110831
  Serious: Yes (Death, Hospitalization, Other)
  Sender: FDA-Public Use
  Company Number: US-ELI_LILLY_AND_COMPANY-US201010004896

PATIENT
  Age: 55 Year
  Sex: Male

DRUGS (1)
  1. FORTEO [Suspect]

REACTIONS (5)
  - FALL [None]
  - ALCOHOL ABUSE [None]
  - HEPATIC FAILURE [None]
  - ASTHENIA [None]
  - RENAL FAILURE [None]
